FAERS Safety Report 25224265 (Version 1)
Quarter: 2025Q2

REPORT INFORMATION
  Report Type: Spontaneous
  Country: US (occurrence: US)
  Receive Date: 20250422
  Receipt Date: 20250422
  Transmission Date: 20250716
  Serious: No
  Sender: AMGEN
  Company Number: US-AMGEN-USASP2025077642

PATIENT
  Sex: Female

DRUGS (5)
  1. REPATHA [Suspect]
     Active Substance: EVOLOCUMAB
     Indication: Hypercholesterolaemia
     Dosage: 140 MILLIGRAM, Q2WK
     Route: 058
     Dates: start: 202501
  2. EZETIMIBE [Concomitant]
     Active Substance: EZETIMIBE
     Indication: Hypercholesterolaemia
     Route: 065
  3. VITAMINS [Concomitant]
     Active Substance: VITAMINS
  4. OMEGA 3 [Concomitant]
     Active Substance: CAPSAICIN
  5. VITAMIN D [Concomitant]
     Active Substance: VITAMIN D NOS

REACTIONS (4)
  - Injection site discolouration [Unknown]
  - Injection site swelling [Unknown]
  - Injection site erythema [Recovering/Resolving]
  - Injection site pruritus [Unknown]

NARRATIVE: CASE EVENT DATE: 20250101
